FAERS Safety Report 8957059 (Version 1)
Quarter: 2012Q4

REPORT INFORMATION
  Report Type: 
  Country: CA (occurrence: CA)
  Receive Date: 20121211
  Receipt Date: 20121211
  Transmission Date: 20130627
  Serious: Yes (Other)
  Sender: FDA-Public Use
  Company Number: CA-ROCHE-1166667

PATIENT
  Sex: Male

DRUGS (2)
  1. XOLAIR [Suspect]
     Indication: ASTHMA
     Dosage: 375 mg, Q2W
     Route: 058
     Dates: start: 20080918
  2. XOLAIR [Suspect]
     Route: 058
     Dates: start: 20090917

REACTIONS (12)
  - Arthritis [Unknown]
  - Dyspnoea [Unknown]
  - Humerus fracture [Unknown]
  - Fall [Unknown]
  - Productive cough [Unknown]
  - Blood pressure increased [Unknown]
  - Contusion [Unknown]
  - Malaise [Unknown]
  - Respiratory rate increased [Unknown]
  - Arthralgia [Unknown]
  - Headache [Unknown]
  - Immobile [Unknown]
